FAERS Safety Report 9914047 (Version 1)
Quarter: 2014Q1

REPORT INFORMATION
  Report Type: Spontaneous
  Country: FR (occurrence: FR)
  Receive Date: 20140220
  Receipt Date: 20140220
  Transmission Date: 20141002
  Serious: Yes (Other)
  Sender: FDA-Public Use
  Company Number: FR-B.I. PHARMACEUTICALS,INC./RIDGEFIELD-2014-BI-07479YA

PATIENT
  Sex: Female

DRUGS (5)
  1. TAMSULOSINA [Suspect]
     Indication: CONTRACTED BLADDER
     Dosage: STRENGTH AND DAILY DOSE: 1 DF
     Route: 048
     Dates: start: 20140208
  2. VESICARE [Suspect]
     Indication: HYPERTONIC BLADDER
     Dosage: 5 MG
     Route: 048
     Dates: start: 20130920, end: 20131128
  3. VESICARE [Suspect]
     Dosage: 5 MG
     Route: 048
     Dates: start: 20140208
  4. INTERFERON (INTERFERON) [Concomitant]
     Route: 065
  5. MINIRINMELT (DESMOPRESSIN ACETATE) [Concomitant]
     Route: 065
     Dates: start: 20130920, end: 20131128

REACTIONS (6)
  - Urinary tract infection [Not Recovered/Not Resolved]
  - Palpitations [Unknown]
  - Off label use [Unknown]
  - Constipation [Recovered/Resolved]
  - Dizziness [Unknown]
  - Off label use [Unknown]
